FAERS Safety Report 19633780 (Version 1)
Quarter: 2021Q3

REPORT INFORMATION
  Report Type: Spontaneous
  Country: US (occurrence: US)
  Receive Date: 20210729
  Receipt Date: 20210729
  Transmission Date: 20211014
  Serious: Yes (Other)
  Sender: FDA-Public Use
  Company Number: None

PATIENT
  Sex: Male

DRUGS (2)
  1. N/A [Concomitant]
     Active Substance: UNSPECIFIED INGREDIENT
  2. CINACALCET. [Suspect]
     Active Substance: CINACALCET
     Route: 048
     Dates: start: 20190814

REACTIONS (2)
  - Cerebrovascular accident [None]
  - Speech disorder [None]
